FAERS Safety Report 7601899-8 (Version None)
Quarter: 2011Q3

REPORT INFORMATION
  Report Type: 
  Country: None (occurrence: None)
  Receive Date: 20110711
  Receipt Date: 20110704
  Transmission Date: 20111222
  Serious: Yes (Other)
  Sender: FDA-Public Use
  Company Number: GB-ABBOTT-11P-167-0836511-00

PATIENT
  Age: 42 Year
  Sex: Female

DRUGS (2)
  1. RITONAVIR [Suspect]
     Indication: PRODUCT USED FOR UNKNOWN INDICATION
     Dosage: THREE MONTHS AGO.
  2. REYATAZ [Suspect]
     Indication: PRODUCT USED FOR UNKNOWN INDICATION
     Dosage: THREE MONTHS AGO.

REACTIONS (3)
  - OCULAR ICTERUS [None]
  - BLOOD BILIRUBIN INCREASED [None]
  - UNDERWEIGHT [None]
